FAERS Safety Report 9789311 (Version 1)
Quarter: 2013Q4

REPORT INFORMATION
  Report Type: Report from Study
  Country: MX (occurrence: MX)
  Receive Date: 20131231
  Receipt Date: 20131231
  Transmission Date: 20140711
  Serious: Yes (Other)
  Sender: FDA-Public Use
  Company Number: MX-ROCHE-1327188

PATIENT
  Sex: 0

DRUGS (2)
  1. ALTEPLASE [Suspect]
     Indication: ACUTE MYOCARDIAL INFARCTION
     Route: 065
  2. TENECTEPLASE [Suspect]
     Indication: ACUTE MYOCARDIAL INFARCTION
     Route: 065

REACTIONS (12)
  - Cardiogenic shock [Unknown]
  - Ischaemia [Unknown]
  - Acute myocardial infarction [Unknown]
  - Cerebrovascular accident [Unknown]
  - Cardiac failure [Unknown]
  - Acute pulmonary oedema [Unknown]
  - Ventricular tachycardia [Unknown]
  - Ventricular tachycardia [Unknown]
  - Haemorrhage [Unknown]
  - Hypotension [Unknown]
  - Renal failure acute [Unknown]
  - Sepsis [Unknown]
